FAERS Safety Report 7423541-1 (Version None)
Quarter: 2011Q2

REPORT INFORMATION
  Report Type: 
  Country: None (occurrence: None)
  Receive Date: 20110407
  Receipt Date: 20110325
  Transmission Date: 20111010
  Serious: Yes (Hospitalization, Other)
  Sender: FDA-Public Use
  Company Number: 2009AC000272

PATIENT
  Age: 61 Year
  Sex: Male

DRUGS (46)
  1. ENALAPRIL [Concomitant]
  2. IBUPROFEN [Concomitant]
  3. NEURONTIN [Concomitant]
  4. GLUCOSAMINE [Concomitant]
  5. ZAROXOLYN [Concomitant]
  6. K-DUR [Concomitant]
  7. VITAMIN B-12 [Concomitant]
  8. FLOMAX [Concomitant]
  9. VASOTEC [Concomitant]
  10. XANAX [Concomitant]
  11. FLOMAX [Concomitant]
  12. PAXIL [Concomitant]
  13. KLOR-CON [Concomitant]
  14. DIGOXIN [Suspect]
     Dosage: 0.25 MG; QD; PO
     Route: 048
     Dates: start: 20041228, end: 20060628
  15. DIGOXIN [Suspect]
     Dosage: PO
     Route: 048
     Dates: start: 20010101
  16. DEMADEX [Concomitant]
  17. TOPROL-XL [Concomitant]
  18. ISOSORBIDE DINITRATE [Concomitant]
  19. ALPRAZOLAM [Concomitant]
  20. ENALAPRIL [Concomitant]
  21. PRAVASTATIN [Concomitant]
  22. PRIMROSE OIL [Concomitant]
  23. FOLIC ACID [Concomitant]
  24. NORTRIPTYLINE [Concomitant]
  25. DEMADEX [Concomitant]
  26. DIGOXIN [Suspect]
     Dosage: 0.125 MG; QD; PO
     Route: 048
     Dates: start: 20060629, end: 20070803
  27. ASPIRIN [Concomitant]
  28. ATENOLOL [Concomitant]
  29. ISOSORBIDE MONONITRATE [Concomitant]
  30. ALPRAZOLAM [Concomitant]
  31. LORTAB [Concomitant]
  32. SPIRONOLACTONE [Concomitant]
  33. DIGOXIN [Suspect]
     Dosage: 0.125 MG; QOD; PO
     Route: 048
     Dates: start: 20070804, end: 20090101
  34. ZETIA [Concomitant]
  35. PRIMARIA [Concomitant]
  36. AMIODARONE [Concomitant]
  37. TRILEPTAL [Concomitant]
  38. TAUROCYAMIN [Concomitant]
  39. HYDROCODONE BITARTRATE [Concomitant]
  40. NORVASC [Concomitant]
  41. ZETIA [Concomitant]
  42. HYDROCODONE BITARTRATE [Concomitant]
  43. PAXIL [Concomitant]
  44. PLAVIX [Concomitant]
  45. MULTI-VITAMIN [Concomitant]
  46. LISINOPRIL [Concomitant]

REACTIONS (61)
  - LITHOTRIPSY [None]
  - OEDEMA PERIPHERAL [None]
  - CONTUSION [None]
  - CORONARY ARTERY STENOSIS [None]
  - FALL [None]
  - HYPOTENSION [None]
  - VOMITING [None]
  - CARDIOACTIVE DRUG LEVEL ABOVE THERAPEUTIC [None]
  - HALLUCINATION [None]
  - DYSPNOEA [None]
  - MULTIPLE INJURIES [None]
  - UNEVALUABLE EVENT [None]
  - VENTRICULAR TACHYCARDIA [None]
  - TEMPERATURE INTOLERANCE [None]
  - RESPIRATORY DISTRESS [None]
  - PULMONARY OEDEMA [None]
  - JOINT SWELLING [None]
  - RENAL COLIC [None]
  - IMPLANTABLE DEFIBRILLATOR INSERTION [None]
  - NEUROPATHY PERIPHERAL [None]
  - TREMOR [None]
  - TRICUSPID VALVE INCOMPETENCE [None]
  - SICK SINUS SYNDROME [None]
  - NAUSEA [None]
  - BRAIN NATRIURETIC PEPTIDE INCREASED [None]
  - CARDIOMYOPATHY [None]
  - CARDIAC FAILURE CONGESTIVE [None]
  - HYPERTENSION [None]
  - JOINT INJURY [None]
  - DISORIENTATION [None]
  - CEREBRAL HAEMORRHAGE [None]
  - ECONOMIC PROBLEM [None]
  - VISUAL IMPAIRMENT [None]
  - BLOOD POTASSIUM INCREASED [None]
  - INSOMNIA [None]
  - PNEUMONIA [None]
  - TOXICOLOGIC TEST NORMAL [None]
  - GOUTY TOPHUS [None]
  - SUBDURAL HAEMATOMA [None]
  - FATIGUE [None]
  - PAIN [None]
  - HAEMOPTYSIS [None]
  - TYPE 2 DIABETES MELLITUS [None]
  - HYPERLIPIDAEMIA [None]
  - TOXICITY TO VARIOUS AGENTS [None]
  - HEAD INJURY [None]
  - GOUT [None]
  - CARDIAC FLUTTER [None]
  - RETINAL DISORDER [None]
  - BLOOD GLUCOSE INCREASED [None]
  - DEPRESSION [None]
  - CORONARY ARTERY DISEASE [None]
  - MITRAL VALVE INCOMPETENCE [None]
  - BACK INJURY [None]
  - MYOCARDIAL INFARCTION [None]
  - ASTHENIA [None]
  - COUGH [None]
  - THIRST [None]
  - JOINT EFFUSION [None]
  - DIASTOLIC DYSFUNCTION [None]
  - DIZZINESS [None]
